FAERS Safety Report 7158878-7 (Version None)
Quarter: 2010Q4

REPORT INFORMATION
  Report Type: 
  Country: None (occurrence: None)
  Receive Date: 20101214
  Receipt Date: 20090707
  Transmission Date: 20110411
  Serious: Yes (Hospitalization)
  Sender: FDA-Public Use
  Company Number: FR-JNJCH-2009018883

PATIENT
  Age: 52 Year
  Sex: Male

DRUGS (3)
  1. ACTIFED [Suspect]
     Indication: NASOPHARYNGITIS
     Dosage: TEXT:UNKNOWN
     Route: 048
     Dates: start: 20090401, end: 20090401
  2. TRAMADOL HYDROCHLORIDE AND ACETAMINOPHEN [Concomitant]
     Indication: PAIN
     Dosage: TEXT:UNKNOWN
     Route: 065
  3. FOSAVANCE [Concomitant]
     Indication: MUSCULOSKELETAL PAIN
     Dosage: TEXT:UNKNOWN
     Route: 065

REACTIONS (6)
  - ANAPHYLACTIC REACTION [None]
  - ANGIOEDEMA [None]
  - LOSS OF CONSCIOUSNESS [None]
  - PRODUCT QUALITY ISSUE [None]
  - PRURITUS GENERALISED [None]
  - URTICARIA [None]
